FAERS Safety Report 15431398 (Version 3)
Quarter: 2018Q4

REPORT INFORMATION
  Report Type: Spontaneous
  Country: DE (occurrence: DE)
  Receive Date: 20180926
  Receipt Date: 20181003
  Transmission Date: 20190204
  Serious: Yes (Death, Life-Threatening, Hospitalization, Other)
  Sender: FDA-Public Use
  Company Number: DE-GILEAD-2018-0364928

PATIENT
  Age: 61 Year
  Sex: Female
  Weight: 67 kg

DRUGS (12)
  1. AMOCLAV                            /00756801/ [Concomitant]
     Dosage: 875/125
     Dates: start: 20180224, end: 20180306
  2. ZYDELIG [Suspect]
     Active Substance: IDELALISIB
     Indication: CHRONIC LYMPHOCYTIC LEUKAEMIA
     Dosage: 150 MG, BID
     Route: 048
     Dates: start: 201502, end: 20180330
  3. RITUXIMAB. [Concomitant]
     Active Substance: RITUXIMAB
     Dosage: UNK
     Dates: start: 201502, end: 201505
  4. NOVALGIN                           /00169801/ [Concomitant]
     Active Substance: ACETAMINOPHEN\CAFFEINE\PROPYPHENAZONE
     Dosage: 500 MG, UNK
     Dates: start: 20180307, end: 20180330
  5. COTRIM FORTE [Suspect]
     Active Substance: SULFAMETHOXAZOLE\TRIMETHOPRIM
     Indication: PROPHYLAXIS
  6. PALLADON [Concomitant]
     Active Substance: HYDROMORPHONE
     Indication: PAIN
  7. METAMIZOLE [Concomitant]
     Active Substance: METAMIZOLE
  8. BENDAMUSTINE [Concomitant]
     Active Substance: BENDAMUSTINE
     Dosage: UNK
     Dates: start: 201502, end: 201505
  9. PANTOZOL [Concomitant]
     Active Substance: PANTOPRAZOLE SODIUM
     Dosage: 40 MG, UNK
     Route: 048
  10. CLEXANE [Suspect]
     Active Substance: ENOXAPARIN SODIUM
     Indication: PULMONARY EMBOLISM
     Dosage: 2X0.7ML
     Route: 058
     Dates: start: 201803, end: 201804
  11. BELOC ZOK MITE [Concomitant]
     Active Substance: METOPROLOL SUCCINATE
     Indication: HYPERTENSION
     Route: 048
  12. COTRIM FORTE [Suspect]
     Active Substance: SULFAMETHOXAZOLE\TRIMETHOPRIM
     Indication: CHRONIC LYMPHOCYTIC LEUKAEMIA
     Dosage: 1 DF, UNK, MON-WED-FRI
     Route: 065
     Dates: start: 201502, end: 20180330

REACTIONS (12)
  - Staphylococcal sepsis [Fatal]
  - Deep vein thrombosis [Recovered/Resolved]
  - General physical health deterioration [Unknown]
  - Toxic epidermal necrolysis [Fatal]
  - Autoimmune disorder [Fatal]
  - Pulmonary embolism [Recovered/Resolved]
  - Cryoglobulinaemia [Unknown]
  - Stevens-Johnson syndrome [Fatal]
  - Skin necrosis [Fatal]
  - Bronchopulmonary aspergillosis [Recovered/Resolved]
  - Von Willebrand^s disease [Recovered/Resolved]
  - Disease progression [Not Recovered/Not Resolved]

NARRATIVE: CASE EVENT DATE: 2015
